FAERS Safety Report 25013670 (Version 1)
Quarter: 2025Q1

REPORT INFORMATION
  Report Type: Spontaneous
  Country: US (occurrence: US)
  Receive Date: 20250226
  Receipt Date: 20250226
  Transmission Date: 20250408
  Serious: No
  Sender: UCB
  Company Number: US-UCBSA-2024004997

PATIENT
  Sex: Male

DRUGS (4)
  1. KEPPRA [Suspect]
     Active Substance: LEVETIRACETAM
     Indication: Product used for unknown indication
     Dates: start: 20221123
  2. ORGOVYX [Suspect]
     Active Substance: RELUGOLIX
     Indication: Prostate cancer
     Route: 048
     Dates: start: 20221122
  3. ORGOVYX [Suspect]
     Active Substance: RELUGOLIX
     Route: 048
     Dates: start: 20221123
  4. ZYTIGA [Suspect]
     Active Substance: ABIRATERONE ACETATE
     Indication: Product used for unknown indication

REACTIONS (9)
  - Hypoaesthesia [Unknown]
  - Blood pressure fluctuation [Unknown]
  - Memory impairment [Unknown]
  - Heart rate abnormal [Unknown]
  - Vomiting [Unknown]
  - Anger [Unknown]
  - Headache [Unknown]
  - Nausea [Unknown]
  - Depression [Unknown]

NARRATIVE: CASE EVENT DATE: 20240108
